FAERS Safety Report 15508975 (Version 1)
Quarter: 2018Q4

REPORT INFORMATION
  Report Type: Spontaneous
  Country: BR (occurrence: BR)
  Receive Date: 20181016
  Receipt Date: 20181016
  Transmission Date: 20190205
  Serious: Yes (Hospitalization, Other)
  Sender: FDA-Public Use
  Company Number: BR-GLAXOSMITHKLINE-BR2018GSK186525

PATIENT
  Sex: Female
  Weight: 13 kg

DRUGS (4)
  1. SERETIDE [Suspect]
     Active Substance: FLUTICASONE PROPIONATE\SALMETEROL XINAFOATE
     Indication: ASTHMA PROPHYLAXIS
     Dosage: UNK
  2. AVAMYS [Suspect]
     Active Substance: FLUTICASONE FUROATE
     Indication: RESPIRATORY DISORDER
     Dosage: 2 PUFF(S), BID
     Route: 045
  3. FLIXOTIDE [Suspect]
     Active Substance: FLUTICASONE PROPIONATE
     Indication: RESPIRATORY DISORDER
     Dosage: 2 PUFF(S), BID
     Route: 055
  4. NORIPURUM (IRON HYDROXIDE + FOLIC ACID) [Concomitant]
     Indication: PRODUCT USED FOR UNKNOWN INDICATION
     Dosage: 12 UNK, QD

REACTIONS (4)
  - Pharyngitis [Unknown]
  - Bacterial infection [Unknown]
  - Product use issue [Recovered/Resolved]
  - Product prescribing issue [Unknown]
